FAERS Safety Report 5536660-1 (Version None)
Quarter: 2007Q4

REPORT INFORMATION
  Report Type: 
  Country: None (occurrence: None)
  Receive Date: 20071206
  Receipt Date: 20070709
  Transmission Date: 20080405
  Serious: Yes (Other)
  Sender: FDA-Public Use
  Company Number: US-AMGEN-US227430

PATIENT
  Sex: Male
  Weight: 90.8 kg

DRUGS (1)
  1. ENBREL [Suspect]
     Indication: PSORIASIS
     Route: 058
     Dates: start: 20070401

REACTIONS (4)
  - ANGIOEDEMA [None]
  - BLOOD PRESSURE INCREASED [None]
  - DYSPNOEA [None]
  - URTICARIA [None]
